FAERS Safety Report 8010459-9 (Version None)
Quarter: 2011Q4

REPORT INFORMATION
  Report Type: 
  Country: None (occurrence: None)
  Receive Date: 20111222
  Receipt Date: 20111216
  Transmission Date: 20120403
  Serious: Yes (Other)
  Sender: FDA-Public Use
  Company Number: TPA2011A07401

PATIENT
  Age: 78 Year
  Sex: Male
  Weight: 87.0906 kg

DRUGS (1)
  1. ACTOS [Suspect]
     Indication: TYPE 2 DIABETES MELLITUS
     Dosage: 45 MG, PER ORAL
     Route: 048
     Dates: start: 20050418, end: 20111028

REACTIONS (1)
  - BLADDER TRANSITIONAL CELL CARCINOMA [None]
